FAERS Safety Report 5748221-X (Version None)
Quarter: 2008Q2

REPORT INFORMATION
  Report Type: 
  Country: None (occurrence: None)
  Receive Date: 20080521
  Receipt Date: 20080507
  Transmission Date: 20081010
  Serious: Yes (Other)
  Sender: FDA-Public Use
  Company Number: 234283J08USA

PATIENT
  Age: 54 Year
  Sex: Female

DRUGS (10)
  1. REBIF [Suspect]
     Indication: MULTIPLE SCLEROSIS
     Dosage: 44 MCG, 3 IN 1 WEEKS, SUBCUTANEOUS
     Route: 058
     Dates: start: 20030701
  2. METOPROLOL TARTRATE [Concomitant]
  3. PROCARDIA [Concomitant]
  4. PRAVACHOL [Concomitant]
  5. SYNTHROID [Concomitant]
  6. PERCOCET [Concomitant]
  7. MS CONTIN [Concomitant]
  8. RITALIN LA [Concomitant]
  9. LEXAPRO [Concomitant]
  10. ARICEPT [Concomitant]

REACTIONS (3)
  - FALL [None]
  - JOINT INJURY [None]
  - ROTATOR CUFF SYNDROME [None]
